FAERS Safety Report 16610572 (Version 1)
Quarter: 2019Q3

REPORT INFORMATION
  Report Type: Spontaneous
  Country: US (occurrence: US)
  Receive Date: 20190722
  Receipt Date: 20190722
  Transmission Date: 20191004
  Serious: No
  Sender: FDA-Public Use
  Company Number: US-TEVA-2019-US-1081359

PATIENT
  Age: 45 Year
  Sex: Male

DRUGS (5)
  1. CLINDAMYCIN. [Suspect]
     Active Substance: CLINDAMYCIN
     Indication: ALOPECIA SCARRING
     Route: 048
  2. DOXYCYCLINE. [Suspect]
     Active Substance: DOXYCYCLINE
     Indication: ALOPECIA SCARRING
     Route: 048
  3. RIFAMPIN. [Suspect]
     Active Substance: RIFAMPIN
     Indication: ALOPECIA SCARRING
     Route: 048
  4. MINOCYCLINE [Suspect]
     Active Substance: MINOCYCLINE HYDROCHLORIDE
     Indication: ALOPECIA SCARRING
     Route: 048
  5. ISOTRETINOIN. [Suspect]
     Active Substance: ISOTRETINOIN
     Indication: ALOPECIA SCARRING
     Dosage: CUMULATIVE DOSE: 3600MG OR 31.7MG/KG
     Route: 065

REACTIONS (2)
  - Drug ineffective [Unknown]
  - Cheilitis [Unknown]
